FAERS Safety Report 4728059-2 (Version None)
Quarter: 2005Q3

REPORT INFORMATION
  Report Type: 
  Country: None (occurrence: None)
  Receive Date: 20050721
  Receipt Date: 20050610
  Transmission Date: 20060218
  Serious: No
  Sender: FDA-Public Use
  Company Number: 2005SP001090

PATIENT
  Age: 76 Year
  Sex: Male
  Weight: 79.3795 kg

DRUGS (4)
  1. LUNESTA [Suspect]
     Indication: SLEEP APNOEA SYNDROME
     Dosage: 2 MG;HS;ORAL
     Route: 048
     Dates: start: 20050501, end: 20050601
  2. PRAVACHOL [Concomitant]
  3. LOTREL [Concomitant]
  4. COZAAR [Concomitant]

REACTIONS (1)
  - DYSGEUSIA [None]
